FAERS Safety Report 6192759-0 (Version None)
Quarter: 2009Q2

REPORT INFORMATION
  Report Type: 
  Country: None (occurrence: None)
  Receive Date: 20090518
  Receipt Date: 20090512
  Transmission Date: 20091009
  Serious: Yes (Other)
  Sender: FDA-Public Use
  Company Number: DK-ROXANE LABORATORIES, INC.-2009-RO-00484RO

PATIENT
  Age: 49 Year
  Sex: Male

DRUGS (12)
  1. METHOTREXATE [Suspect]
     Indication: RHEUMATOID ARTHRITIS
  2. METHOTREXATE [Suspect]
     Indication: ACUTE FEBRILE NEUTROPHILIC DERMATOSIS
  3. CLARITHROMYCIN [Suspect]
     Indication: MYCOBACTERIUM MARINUM INFECTION
     Dosage: 1000MG
  4. PREDNISOLONE [Suspect]
     Indication: RHEUMATOID ARTHRITIS
  5. PREDNISOLONE [Suspect]
     Indication: ACUTE FEBRILE NEUTROPHILIC DERMATOSIS
  6. INFLIXIMAB [Suspect]
     Indication: SERONEGATIVE ARTHRITIS
  7. INFLIXIMAB [Suspect]
     Indication: ACUTE FEBRILE NEUTROPHILIC DERMATOSIS
  8. DOXYCYCLIN [Suspect]
     Indication: MYCOBACTERIUM MARINUM INFECTION
     Dosage: 200MG
  9. RIFAMPICIN [Suspect]
     Indication: MYCOBACTERIUM MARINUM INFECTION
     Dosage: 600MG
  10. ETHAMBUTOL HCL [Suspect]
     Indication: MYCOBACTERIUM MARINUM INFECTION
     Dosage: 1200MG
  11. PAMIDRONATE DISODIUM [Concomitant]
     Indication: HYPERCALCAEMIA
  12. PAMIDRONATE DISODIUM [Concomitant]

REACTIONS (4)
  - HYPERCALCAEMIA [None]
  - MYCOBACTERIUM MARINUM INFECTION [None]
  - RENAL FAILURE [None]
  - VITAMIN D DECREASED [None]
